FAERS Safety Report 8818284 (Version 1)
Quarter: 2012Q4

REPORT INFORMATION
  Report Type: 
  Country: NL (occurrence: NL)
  Receive Date: 20121001
  Receipt Date: 20121001
  Transmission Date: 20130627
  Serious: Yes (Death)
  Sender: FDA-Public Use
  Company Number: NL-ASTRAZENECA-2012SE74847

PATIENT
  Sex: Female

DRUGS (2)
  1. FULVESTRANT [Suspect]
     Indication: BREAST CANCER
     Dosage: LOADING DOSE OF 500 MG ON DAY 1 AND 250 MG ON D 15 OF CYCLE (C) 1 AND D 1 OF EACH CYCLE THEREAFTER
     Route: 030
  2. ENZASTAURIN [Suspect]
     Indication: BREAST CANCER
     Route: 048

REACTIONS (1)
  - Hepatic function abnormal [Fatal]
